FAERS Safety Report 22073623 (Version 3)
Quarter: 2023Q4

REPORT INFORMATION
  Report Type: Spontaneous
  Country: US (occurrence: US)
  Receive Date: 20230308
  Receipt Date: 20231206
  Transmission Date: 20240109
  Serious: Yes (Other)
  Sender: FDA-Public Use
  Company Number: US-PFIZER INC-202300091577

PATIENT
  Age: 56 Year
  Sex: Female
  Weight: 71.67 kg

DRUGS (1)
  1. PREMARIN [Suspect]
     Active Substance: ESTROGENS, CONJUGATED

REACTIONS (2)
  - Device use error [Unknown]
  - Fungal infection [Unknown]

NARRATIVE: CASE EVENT DATE: 20230201
